FAERS Safety Report 24160505 (Version 1)
Quarter: 2024Q3

REPORT INFORMATION
  Report Type: Report from Study
  Country: US (occurrence: US)
  Receive Date: 20240801
  Receipt Date: 20240801
  Transmission Date: 20241017
  Serious: Yes (Other)
  Sender: JAZZ
  Company Number: US-JAZZ PHARMACEUTICALS-2022-US-015980

PATIENT
  Age: 35 Year
  Sex: Female

DRUGS (64)
  1. XYWAV [Suspect]
     Active Substance: CALCIUM OXYBATE\MAGNESIUM OXYBATE\POTASSIUM OXYBATE\SODIUM OXYBATE
     Indication: Narcolepsy
     Dosage: 5 GRAM, BID
  2. XYWAV [Suspect]
     Active Substance: CALCIUM OXYBATE\MAGNESIUM OXYBATE\POTASSIUM OXYBATE\SODIUM OXYBATE
     Indication: Cataplexy
     Dosage: 4.5 GRAM, BID
  3. XYWAV [Suspect]
     Active Substance: CALCIUM OXYBATE\MAGNESIUM OXYBATE\POTASSIUM OXYBATE\SODIUM OXYBATE
     Indication: Somnolence
     Dosage: UNK
  4. XYWAV [Suspect]
     Active Substance: CALCIUM OXYBATE\MAGNESIUM OXYBATE\POTASSIUM OXYBATE\SODIUM OXYBATE
     Dosage: UNK
  5. HYDROCODONE [Suspect]
     Active Substance: HYDROCODONE
     Indication: Product used for unknown indication
  6. IBUPROFEN [Concomitant]
     Active Substance: IBUPROFEN
     Indication: Pain
     Dosage: UNK AS NECESSARY, USUALLY BID OR TID
     Route: 048
     Dates: start: 20150420
  7. TIZANIDINE HYDROCHLORIDE [Concomitant]
     Active Substance: TIZANIDINE HYDROCHLORIDE
     Indication: Muscle spasms
     Dosage: UNK UNK, QID
     Route: 048
     Dates: start: 20151104
  8. TIZANIDINE HYDROCHLORIDE [Concomitant]
     Active Substance: TIZANIDINE HYDROCHLORIDE
     Indication: Pain
  9. BUPRENORPHINE [Concomitant]
     Active Substance: BUPRENORPHINE
     Indication: Pain
     Dosage: UNK AS NECESSARY, BID OR TID
     Dates: start: 20151104
  10. ALCOHOL [Concomitant]
     Active Substance: ALCOHOL
     Indication: Product used for unknown indication
     Dosage: 0000
     Dates: start: 20151104
  11. TRAMADOL HCL [Concomitant]
     Active Substance: TRAMADOL HYDROCHLORIDE
     Indication: Pain
     Dosage: UNK UNK, QID
     Route: 048
     Dates: start: 20160721
  12. RELPAX [Concomitant]
     Active Substance: ELETRIPTAN HYDROBROMIDE
     Indication: Product used for unknown indication
     Dosage: 0000
     Dates: start: 20160801
  13. ADDERALL [Concomitant]
     Active Substance: AMPHETAMINE ASPARTATE\AMPHETAMINE SULFATE\DEXTROAMPHETAMINE SACCHARATE\DEXTROAMPHETAMINE SULFATE
     Indication: Product used for unknown indication
     Dosage: THREE TIMES PER WEEK
     Route: 048
     Dates: start: 20180326
  14. SILDENAFIL [Concomitant]
     Active Substance: SILDENAFIL
     Indication: Product used for unknown indication
     Dosage: 1 TABLET, 2-3 TIMES PER DAY
     Route: 048
     Dates: start: 20220509
  15. METHOCARBAMOL [Concomitant]
     Active Substance: METHOCARBAMOL
     Indication: Muscle spasms
     Dosage: AS NECESSARY
     Route: 048
  16. METHOCARBAMOL [Concomitant]
     Active Substance: METHOCARBAMOL
     Dosage: AS NECESSARY
     Route: 048
  17. METHOCARBAMOL [Concomitant]
     Active Substance: METHOCARBAMOL
     Dosage: AS NECESSARY
     Route: 048
  18. METHOCARBAMOL [Concomitant]
     Active Substance: METHOCARBAMOL
     Dosage: AS NECESSARY
     Route: 048
  19. WAKIX [Concomitant]
     Active Substance: PITOLISANT HYDROCHLORIDE
     Indication: Product used for unknown indication
     Dosage: UNK, QD 2 TABLETS
     Route: 048
  20. WAKIX [Concomitant]
     Active Substance: PITOLISANT HYDROCHLORIDE
     Dosage: UNK, QD 2 TABLETS
     Route: 048
  21. WAKIX [Concomitant]
     Active Substance: PITOLISANT HYDROCHLORIDE
     Dosage: UNK, QD 2 TABLETS
     Route: 048
  22. WAKIX [Concomitant]
     Active Substance: PITOLISANT HYDROCHLORIDE
     Dosage: UNK, QD 2 TABLETS
     Route: 048
  23. PITOLISANT HYDROCHLORIDE [Concomitant]
     Active Substance: PITOLISANT HYDROCHLORIDE
     Indication: Product used for unknown indication
     Dosage: UNK, QD 2 TABLET
     Route: 048
  24. PITOLISANT HYDROCHLORIDE [Concomitant]
     Active Substance: PITOLISANT HYDROCHLORIDE
     Dosage: UNK, QD 2 TABLET
     Route: 048
  25. PITOLISANT HYDROCHLORIDE [Concomitant]
     Active Substance: PITOLISANT HYDROCHLORIDE
     Dosage: UNK, QD 2 TABLET
     Route: 048
  26. PITOLISANT HYDROCHLORIDE [Concomitant]
     Active Substance: PITOLISANT HYDROCHLORIDE
     Dosage: UNK, QD 2 TABLET
     Route: 048
  27. NURTEC ODT [Concomitant]
     Active Substance: RIMEGEPANT SULFATE
     Indication: Product used for unknown indication
     Dosage: AS NECESSARY
     Route: 048
  28. NURTEC ODT [Concomitant]
     Active Substance: RIMEGEPANT SULFATE
     Dosage: AS NECESSARY
     Route: 048
  29. NURTEC ODT [Concomitant]
     Active Substance: RIMEGEPANT SULFATE
     Dosage: AS NECESSARY
     Route: 048
  30. NURTEC ODT [Concomitant]
     Active Substance: RIMEGEPANT SULFATE
     Dosage: AS NECESSARY
     Route: 048
  31. UBRELVY [Concomitant]
     Active Substance: UBROGEPANT
     Indication: Product used for unknown indication
     Dosage: TAKE 1 AS NECESSARY
     Route: 048
  32. UBRELVY [Concomitant]
     Active Substance: UBROGEPANT
     Dosage: TAKE 1 AS NECESSARY
     Route: 048
  33. UBRELVY [Concomitant]
     Active Substance: UBROGEPANT
     Dosage: TAKE 1 AS NECESSARY
     Route: 048
  34. UBRELVY [Concomitant]
     Active Substance: UBROGEPANT
     Dosage: TAKE 1 AS NECESSARY
     Route: 048
  35. ELETRIPTAN HYDROBROMIDE [Concomitant]
     Active Substance: ELETRIPTAN HYDROBROMIDE
     Indication: Migraine
     Dosage: TAKE 1
     Route: 048
  36. ELETRIPTAN HYDROBROMIDE [Concomitant]
     Active Substance: ELETRIPTAN HYDROBROMIDE
     Dosage: TAKE 1
     Route: 048
  37. ELETRIPTAN HYDROBROMIDE [Concomitant]
     Active Substance: ELETRIPTAN HYDROBROMIDE
     Dosage: TAKE 1
     Route: 048
  38. ELETRIPTAN HYDROBROMIDE [Concomitant]
     Active Substance: ELETRIPTAN HYDROBROMIDE
     Dosage: TAKE 1
     Route: 048
  39. ZTLIDO [Concomitant]
     Active Substance: LIDOCAINE
     Indication: Back pain
     Dosage: AS NECESSARY
  40. ZTLIDO [Concomitant]
     Active Substance: LIDOCAINE
     Indication: Arthralgia
     Dosage: AS NECESSARY
  41. ZTLIDO [Concomitant]
     Active Substance: LIDOCAINE
     Dosage: AS NECESSARY
  42. ZTLIDO [Concomitant]
     Active Substance: LIDOCAINE
     Dosage: AS NECESSARY
  43. MOLOXIN [Concomitant]
     Indication: Product used for unknown indication
     Dosage: UNK
  44. MOLOXIN [Concomitant]
     Dosage: UNK
  45. MOLOXIN [Concomitant]
     Dosage: UNK
  46. MOLOXIN [Concomitant]
     Dosage: UNK
  47. IODINE [Concomitant]
     Active Substance: IODINE
     Indication: Product used for unknown indication
     Dosage: UNK
  48. IODINE [Concomitant]
     Active Substance: IODINE
     Dosage: UNK
  49. IODINE [Concomitant]
     Active Substance: IODINE
     Dosage: UNK
  50. IODINE [Concomitant]
     Active Substance: IODINE
     Dosage: UNK
  51. AMLODIPINE BESYLATE [Concomitant]
     Active Substance: AMLODIPINE BESYLATE
     Indication: Product used for unknown indication
  52. MINOXIDIL [Concomitant]
     Active Substance: MINOXIDIL
     Indication: Product used for unknown indication
  53. RIZATRIPTAN [Concomitant]
     Active Substance: RIZATRIPTAN
     Indication: Product used for unknown indication
  54. SUBOXONE [Concomitant]
     Active Substance: BUPRENORPHINE HYDROCHLORIDE\NALOXONE HYDROCHLORIDE
     Indication: Product used for unknown indication
     Dosage: 8MG-2MG SUBLINGUAL FILM
     Route: 060
  55. SUBOXONE [Concomitant]
     Active Substance: BUPRENORPHINE HYDROCHLORIDE\NALOXONE HYDROCHLORIDE
     Dosage: 8MG-2MG SUBLINGUAL FILM
     Route: 060
  56. SUBOXONE [Concomitant]
     Active Substance: BUPRENORPHINE HYDROCHLORIDE\NALOXONE HYDROCHLORIDE
     Dosage: 8MG-2MG SUBLINGUAL FILM
     Route: 060
  57. SUBOXONE [Concomitant]
     Active Substance: BUPRENORPHINE HYDROCHLORIDE\NALOXONE HYDROCHLORIDE
     Dosage: 8MG-2MG SUBLINGUAL FILM
     Route: 060
  58. SUBOXONE [Concomitant]
     Active Substance: BUPRENORPHINE HYDROCHLORIDE\NALOXONE HYDROCHLORIDE
     Dosage: 8MG-2MG SUBLINGUAL FILM
     Route: 060
  59. SUBOXONE [Concomitant]
     Active Substance: BUPRENORPHINE HYDROCHLORIDE\NALOXONE HYDROCHLORIDE
     Dosage: 8MG-2MG SUBLINGUAL FILM
     Route: 060
  60. ZOLMITRIPTAN [Concomitant]
     Active Substance: ZOLMITRIPTAN
     Indication: Product used for unknown indication
  61. ADDYI [Concomitant]
     Active Substance: FLIBANSERIN
     Indication: Product used for unknown indication
  62. VITAMIN K [Concomitant]
     Active Substance: PHYTONADIONE
     Indication: Product used for unknown indication
     Dosage: UNK
     Dates: start: 20240419
  63. HYDROXYZINE [Concomitant]
     Active Substance: HYDROXYZINE HYDROCHLORIDE
     Indication: Hypersensitivity
     Dosage: UNK
     Dates: start: 20240610
  64. EPIPEN [Concomitant]
     Active Substance: EPINEPHRINE
     Indication: Hypersensitivity
     Dosage: UNK
     Dates: start: 20240610

REACTIONS (8)
  - Surgery [Unknown]
  - Surgical failure [Unknown]
  - Peripheral vascular disorder [Unknown]
  - Drug hypersensitivity [Unknown]
  - Muscle spasms [Unknown]
  - Food intolerance [Unknown]
  - Prescribed overdose [Unknown]
  - Product administration interrupted [Unknown]

NARRATIVE: CASE EVENT DATE: 20240601
